FAERS Safety Report 7110372-5 (Version None)
Quarter: 2010Q4

REPORT INFORMATION
  Report Type: 
  Country: None (occurrence: None)
  Receive Date: 20101118
  Receipt Date: 20101108
  Transmission Date: 20110411
  Serious: Yes (Other)
  Sender: FDA-Public Use
  Company Number: US-PFIZER INC-2010145888

PATIENT
  Sex: Female

DRUGS (3)
  1. ZYVOX [Suspect]
     Indication: BACTERIAL INFECTION
     Dosage: UNK
     Dates: start: 20090301, end: 20090801
  2. ESTRADIOL [Concomitant]
     Dosage: UNK
  3. PROGESTERONE [Concomitant]

REACTIONS (2)
  - INCORRECT DRUG ADMINISTRATION DURATION [None]
  - NEUROPATHY PERIPHERAL [None]
